FAERS Safety Report 7247935-2 (Version None)
Quarter: 2011Q1

REPORT INFORMATION
  Report Type: 
  Country: None (occurrence: None)
  Receive Date: 20110127
  Receipt Date: 20101123
  Transmission Date: 20110831
  Serious: No
  Sender: FDA-Public Use
  Company Number: US-MYLANLABS-2010S1015687

PATIENT
  Age: 57 Year
  Sex: Male

DRUGS (3)
  1. MULTI-VITAMINS [Concomitant]
  2. BUPROPION HYDROCHLORIDE [Suspect]
     Indication: DEPRESSION
     Route: 048
     Dates: start: 20100812, end: 20100823
  3. VITAMIN E [Concomitant]

REACTIONS (5)
  - ANXIETY [None]
  - HEADACHE [None]
  - DRUG INEFFECTIVE [None]
  - TENSION [None]
  - DEPRESSION [None]
